FAERS Safety Report 5549928-X (Version None)
Quarter: 2007Q4

REPORT INFORMATION
  Report Type: 
  Country: None (occurrence: None)
  Receive Date: 20071212
  Receipt Date: 20071211
  Transmission Date: 20080405
  Serious: Yes (Other)
  Sender: FDA-Public Use
  Company Number: BR-BRISTOL-MYERS SQUIBB COMPANY-14010169

PATIENT
  Age: 53 Month
  Sex: Female

DRUGS (3)
  1. DIDANOSINE [Suspect]
     Indication: ANTIRETROVIRAL THERAPY
  2. STAVUDINE [Suspect]
     Indication: ANTIRETROVIRAL THERAPY
  3. NELFINAVIR [Suspect]
     Indication: ANTIRETROVIRAL THERAPY

REACTIONS (1)
  - ENCEPHALOPATHY [None]
